FAERS Safety Report 18620917 (Version 1)
Quarter: 2020Q4

REPORT INFORMATION
  Report Type: Other
  Country: US (occurrence: US)
  Receive Date: 20201215
  Receipt Date: 20201215
  Transmission Date: 20210114
  Serious: No
  Sender: FDA-Public Use
  Company Number: US-ELITE LABORATORIES INC.-2020ELT00087

PATIENT
  Sex: Female
  Weight: 64.4 kg

DRUGS (6)
  1. CALCIUM [Concomitant]
     Active Substance: CALCIUM
  2. VITAMIN D3 [Concomitant]
     Active Substance: CHOLECALCIFEROL
  3. VITAMIN B FULL SPECTRUM [Concomitant]
  4. ESTROGEN [Concomitant]
     Active Substance: ESTROGENS
  5. DEXTROAMPHET SACCHARAT, AMPHET ASPARTATE, DEXTROAMPHET SULFATE AND AMPHET SULFAT [Suspect]
     Active Substance: AMPHETAMINE ASPARTATE\AMPHETAMINE SULFATE\DEXTROAMPHETAMINE SACCHARATE\DEXTROAMPHETAMINE SULFATE
     Dosage: 20 MG, 2X/DAY SOME DAYS (MOST DAYS 1X/DAY)
     Route: 048
     Dates: start: 202006, end: 202007
  6. DEXTROAMPHET SACCHARAT, AMPHET ASPARTATE, DEXTROAMPHET SULFATE AND AMPHET SULFAT [Suspect]
     Active Substance: AMPHETAMINE ASPARTATE\AMPHETAMINE SULFATE\DEXTROAMPHETAMINE SACCHARATE\DEXTROAMPHETAMINE SULFATE
     Indication: ATTENTION DEFICIT HYPERACTIVITY DISORDER
     Dosage: 20 MG, 1X/DAY MOST DAYS, (2X/DAY SOME DAYS)
     Route: 048
     Dates: start: 202006, end: 202007

REACTIONS (9)
  - Lethargy [Recovered/Resolved]
  - Diarrhoea [Recovered/Resolved]
  - Product substitution issue [Recovered/Resolved]
  - Somnolence [Recovered/Resolved]
  - Haematochezia [Recovered/Resolved]
  - Drug ineffective [Recovered/Resolved]
  - Abdominal pain upper [Recovered/Resolved]
  - Drug tolerance [Recovered/Resolved]
  - Feeling abnormal [Recovered/Resolved]

NARRATIVE: CASE EVENT DATE: 2020
